FAERS Safety Report 10021027 (Version 2)
Quarter: 2014Q1

REPORT INFORMATION
  Report Type: Report from Study
  Country: DE (occurrence: DE)
  Receive Date: 20140319
  Receipt Date: 20140319
  Transmission Date: 20141002
  Serious: Yes (Other)
  Sender: FDA-Public Use
  Company Number: DE-BEH-2012034085

PATIENT
  Age: 77 Year
  Sex: Male
  Weight: 78 kg

DRUGS (6)
  1. PRIVIGEN [Suspect]
     Dosage: INFUSION RATE 2-3ML/MIN.
     Route: 042
     Dates: start: 20121119, end: 20121119
  2. PRIVIGEN [Suspect]
     Dosage: INFUSION RATE 2-3ML/MIN.
     Route: 042
     Dates: start: 20121218, end: 20121218
  3. PRIVIGEN [Suspect]
     Dosage: INFUSION RATE 2-3ML/MIN.
     Route: 042
     Dates: start: 20130115, end: 20130115
  4. PRIVIGEN [Suspect]
     Dosage: INFUSION RATE 2-3ML/MIN.
     Route: 042
     Dates: start: 20130212, end: 20130212
  5. PRIVIGEN [Suspect]
     Dosage: INFUSION RATE 2-3ML/MIN.
     Route: 042
     Dates: start: 20130307, end: 20130307
  6. PRIVIGEN [Suspect]
     Indication: IMMUNODEFICIENCY
     Dosage: INFUSION RATE 2-3ML/MIN.
     Route: 042
     Dates: start: 20130402, end: 20130402

REACTIONS (2)
  - Pneumonia [Recovering/Resolving]
  - Chills [Recovered/Resolved]
